FAERS Safety Report 17129131 (Version 1)
Quarter: 2019Q4

REPORT INFORMATION
  Report Type: Spontaneous
  Country: GB (occurrence: GB)
  Receive Date: 20191209
  Receipt Date: 20191209
  Transmission Date: 20200122
  Serious: Yes (Other)
  Sender: FDA-Public Use
  Company Number: GB-PFIZER INC-2019526109

PATIENT
  Sex: Female

DRUGS (1)
  1. SERTRALINE HCL [Suspect]
     Active Substance: SERTRALINE HYDROCHLORIDE
     Dosage: 50 MG, 1X/DAY (50 MILLIGRAM, ONCE A DAY)
     Route: 048

REACTIONS (3)
  - Drug ineffective [Unknown]
  - Tremor [Recovered/Resolved]
  - Urinary retention [Recovered/Resolved]
